FAERS Safety Report 9460349 (Version 1)
Quarter: 2013Q3

REPORT INFORMATION
  Report Type: Spontaneous
  Country: AU (occurrence: AU)
  Receive Date: 20130815
  Receipt Date: 20130815
  Transmission Date: 20140515
  Serious: Yes (Hospitalization)
  Sender: FDA-Public Use
  Company Number: AU-PFIZER INC-2013233533

PATIENT
  Age: 74 Year
  Sex: Male

DRUGS (19)
  1. CIPROFLOXACIN HCL [Suspect]
     Dosage: 750 MG, DAILY
     Route: 042
     Dates: start: 20020831, end: 20020920
  2. RIFAMPICIN [Suspect]
     Indication: OSTEOMYELITIS
     Dosage: 600 MG, DAILY
     Route: 048
     Dates: start: 20020831, end: 20020914
  3. VANCOMYCIN [Suspect]
     Indication: OSTEOMYELITIS
     Dosage: 1 G, DAILY
     Route: 042
     Dates: start: 20020824, end: 20020906
  4. FLAGYL [Suspect]
     Dosage: 500 MG, DAILY
     Route: 042
     Dates: start: 20020824, end: 20020831
  5. FUCIDIN [Suspect]
     Indication: OSTEOMYELITIS
     Dosage: 250 MG, DAILY
     Route: 048
     Dates: start: 20020831, end: 20020914
  6. TEICOPLANIN [Suspect]
     Dosage: 400 MG, DAILY
     Route: 042
     Dates: start: 20020916, end: 20020919
  7. METRONIDAZOLE [Concomitant]
     Dosage: UNK
  8. ZYVOX [Concomitant]
     Dosage: UNK
  9. NILSTAT [Concomitant]
     Dosage: UNK
  10. SODIBIC [Concomitant]
     Dosage: UNK
  11. MAGMIN [Concomitant]
     Dosage: UNK
  12. MEGAFOL [Concomitant]
     Dosage: UNK
  13. BETAMIN [Concomitant]
     Dosage: UNK
  14. VITAMIN C [Concomitant]
     Dosage: UNK
  15. PANADOL [Concomitant]
     Dosage: UNK
  16. HYDRADERM [Concomitant]
     Dosage: UNK
  17. MIXTARD [Concomitant]
     Dosage: UNK
  18. COUMADIN [Concomitant]
     Dosage: UNK
  19. EPREX [Concomitant]
     Dosage: UNK

REACTIONS (5)
  - Stevens-Johnson syndrome [Not Recovered/Not Resolved]
  - Proteinuria [Not Recovered/Not Resolved]
  - Renal impairment [Not Recovered/Not Resolved]
  - Rash [Not Recovered/Not Resolved]
  - Vomiting [Not Recovered/Not Resolved]
